FAERS Safety Report 6701556-6 (Version None)
Quarter: 2010Q2

REPORT INFORMATION
  Report Type: 
  Country: None (occurrence: None)
  Receive Date: 20100429
  Receipt Date: 20100420
  Transmission Date: 20101027
  Serious: Yes (Other)
  Sender: FDA-Public Use
  Company Number: US-JNJFOC-20100405322

PATIENT
  Sex: Female

DRUGS (11)
  1. TOPAMAX [Suspect]
     Indication: MIGRAINE
     Route: 048
  2. TOPAMAX [Suspect]
     Route: 048
  3. TOPAMAX [Suspect]
     Route: 048
  4. TOPAMAX [Suspect]
     Route: 048
  5. TOPIRAMATE [Suspect]
     Indication: MIGRAINE
     Route: 048
  6. TOPIRAMATE [Suspect]
     Route: 048
  7. TOPIRAMATE [Suspect]
     Route: 048
  8. TOPIRAMATE [Suspect]
     Route: 048
  9. NORTRIPTYLINE HCL [Concomitant]
     Indication: NEUROPATHY PERIPHERAL
     Route: 048
  10. LEVOXYL [Concomitant]
     Indication: THYROID DISORDER
     Route: 048
  11. NIRAVAM [Concomitant]
     Route: 065

REACTIONS (15)
  - ABDOMINAL DISTENSION [None]
  - ABORTION SPONTANEOUS [None]
  - CSF TEST ABNORMAL [None]
  - DEHYDRATION [None]
  - DEPRESSED LEVEL OF CONSCIOUSNESS [None]
  - DRUG EXPOSURE DURING PREGNANCY [None]
  - GASTROOESOPHAGEAL REFLUX DISEASE [None]
  - INCOHERENT [None]
  - PARAESTHESIA [None]
  - SENSORY DISTURBANCE [None]
  - SYNCOPE [None]
  - UNINTENDED PREGNANCY [None]
  - URINE ABNORMALITY [None]
  - VOMITING [None]
  - WHITE BLOOD CELL COUNT INCREASED [None]
